FAERS Safety Report 6959408-2 (Version None)
Quarter: 2010Q3

REPORT INFORMATION
  Report Type: 
  Country: None (occurrence: None)
  Receive Date: 20100831
  Receipt Date: 20100831
  Transmission Date: 20110219
  Serious: Yes (Hospitalization)
  Sender: FDA-Public Use
  Company Number: None

PATIENT
  Sex: Male
  Weight: 92.9874 kg

DRUGS (1)
  1. DOXIL [Suspect]
     Indication: MULTIPLE MYELOMA
     Dosage: 65.10 IV
     Route: 042
     Dates: start: 20100819

REACTIONS (1)
  - ATRIAL FIBRILLATION [None]
